FAERS Safety Report 5814933-2 (Version None)
Quarter: 2008Q3

REPORT INFORMATION
  Report Type: 
  Country: None (occurrence: None)
  Receive Date: 20080718
  Receipt Date: 20080710
  Transmission Date: 20090109
  Serious: Yes (Other)
  Sender: FDA-Public Use
  Company Number: PHHY2008JP14189

PATIENT
  Sex: Female

DRUGS (2)
  1. EXJADE [Suspect]
     Indication: MYELODYSPLASTIC SYNDROME
     Dosage: 500 MG/DAY
     Route: 048
     Dates: start: 20080626, end: 20080707
  2. ALLOPURINOL [Concomitant]
     Route: 048

REACTIONS (2)
  - HAEMOGLOBIN DECREASED [None]
  - MOUTH HAEMORRHAGE [None]
